FAERS Safety Report 5020106-6 (Version None)
Quarter: 2006Q2

REPORT INFORMATION
  Report Type: 
  Country: None (occurrence: None)
  Receive Date: 20060607
  Receipt Date: 20060526
  Transmission Date: 20061013
  Serious: Yes (Other)
  Sender: FDA-Public Use
  Company Number: US-ROCHE-450213

PATIENT

DRUGS (3)
  1. FUZEON [Suspect]
     Indication: DRUG USE FOR UNKNOWN INDICATION
     Route: 058
  2. FUZEON [Suspect]
     Route: 058
  3. APTIVUS [Concomitant]
     Dosage: STOPPED AND RECHALLENGED.
     Route: 048

REACTIONS (1)
  - STEVENS-JOHNSON SYNDROME [None]
